FAERS Safety Report 22888664 (Version 2)
Quarter: 2023Q4

REPORT INFORMATION
  Report Type: Spontaneous
  Country: FR (occurrence: FR)
  Receive Date: 20230831
  Receipt Date: 20231003
  Transmission Date: 20240109
  Serious: Yes (Hospitalization, Other)
  Sender: FDA-Public Use
  Company Number: None

PATIENT
  Age: 62 Year
  Sex: Female
  Weight: 65 kg

DRUGS (20)
  1. PANTOPRAZOLE [Suspect]
     Active Substance: PANTOPRAZOLE
     Indication: Gastric ulcer
     Dosage: 40 MG, 1X/DAY
     Route: 048
     Dates: start: 2023
  2. FESOTERODINE [Suspect]
     Active Substance: FESOTERODINE
     Dosage: UNK
     Route: 065
  3. ENBREL [Suspect]
     Active Substance: ETANERCEPT
     Dosage: UNK
     Route: 065
  4. QUETIAPINE FUMARATE [Suspect]
     Active Substance: QUETIAPINE FUMARATE
     Indication: Mental disorder
     Dosage: 100 MG, 1X/DAY
     Route: 048
  5. PREDNISONE [Suspect]
     Active Substance: PREDNISONE
     Dosage: 1 DF, 1X/DAY
     Route: 048
     Dates: start: 20230728
  6. SKENAN [Suspect]
     Active Substance: MORPHINE SULFATE
     Indication: Pain
     Dosage: 2 DF, 2X/DAY (2 DOSAGE FORM, Q12H)
     Route: 048
     Dates: start: 2023
  7. SKENAN [Suspect]
     Active Substance: MORPHINE SULFATE
     Dosage: 3 DF
     Route: 048
     Dates: start: 2023
  8. CYAMEMAZINE [Suspect]
     Active Substance: CYAMEMAZINE
     Indication: Mental disorder
     Dosage: 100 MG, 1X/DAY
     Route: 048
  9. MORPHINE SULFATE [Suspect]
     Active Substance: MORPHINE SULFATE
     Indication: Pain
     Dosage: 3 DF
     Route: 048
     Dates: start: 2023
  10. CLOMIPRAMINE HYDROCHLORIDE [Suspect]
     Active Substance: CLOMIPRAMINE HYDROCHLORIDE
     Indication: Mental disorder
     Dosage: 150 MG, 1X/DAY
     Route: 048
  11. MORPHINE SULFATE [Suspect]
     Active Substance: MORPHINE SULFATE
     Indication: Pain
     Dosage: 2 DF, 2X/DAY (2 DOSAGE FORM, Q12H)
     Route: 048
     Dates: start: 2023
  12. MORPHINE SULFATE [Suspect]
     Active Substance: MORPHINE SULFATE
     Dosage: 3 DF, 2X/DAY (3 DOSAGE FORM, Q12H)
     Route: 048
     Dates: start: 2023
  13. PILOCARPINE [Suspect]
     Active Substance: PILOCARPINE
     Dosage: UNK
     Route: 065
  14. ANETHOLTRITHION [Suspect]
     Active Substance: ANETHOLTRITHION
     Dosage: UNK
     Route: 065
  15. LEVOTHYROXINE SODIUM [Suspect]
     Active Substance: LEVOTHYROXINE SODIUM
     Dosage: UNK
     Route: 065
  16. SPAGULAX [Suspect]
     Active Substance: HERBALS\PLANTAGO OVATA SEED
     Dosage: UNK
     Route: 065
  17. POTASSIUM BITARTRATE\SODIUM BICARBONATE [Suspect]
     Active Substance: POTASSIUM BITARTRATE\SODIUM BICARBONATE
     Dosage: UNK
     Route: 065
  18. TROSPIUM CHLORIDE [Suspect]
     Active Substance: TROSPIUM CHLORIDE
     Dosage: UNK
     Route: 065
  19. CALCIUM LEVULINATE ANHYDROUS\CHOLECALCIFEROL\CYANOCOBALAMIN [Suspect]
     Active Substance: CALCIUM LEVULINATE ANHYDROUS\CHOLECALCIFEROL\CYANOCOBALAMIN
     Dosage: UNK
     Route: 065
  20. LACTULOSE [Suspect]
     Active Substance: LACTULOSE
     Dosage: UNK
     Route: 065

REACTIONS (2)
  - Oedema peripheral [Not Recovered/Not Resolved]
  - Psychiatric decompensation [Unknown]

NARRATIVE: CASE EVENT DATE: 20230701
